FAERS Safety Report 24740028 (Version 4)
Quarter: 2025Q3

REPORT INFORMATION
  Report Type: Spontaneous
  Country: US (occurrence: US)
  Receive Date: 20241216
  Receipt Date: 20250806
  Transmission Date: 20251021
  Serious: Yes (Other)
  Sender: ITALFARMACO SPA
  Company Number: US-ITALFARMACO SPA-2167191

PATIENT
  Age: 5 Year
  Sex: Male
  Weight: 22.68 kg

DRUGS (3)
  1. DUVYZAT [Suspect]
     Active Substance: GIVINOSTAT
     Indication: Duchenne muscular dystrophy
     Dates: start: 20241003
  2. AGAMREE [Concomitant]
     Active Substance: VAMOROLONE
  3. ELEVIDYS [Concomitant]
     Active Substance: DELANDISTROGENE MOXEPARVOVEC-ROKL

REACTIONS (3)
  - Platelet count decreased [Not Recovered/Not Resolved]
  - Off label use [Unknown]
  - Blood triglycerides increased [Not Recovered/Not Resolved]
